FAERS Safety Report 7204412-2 (Version None)
Quarter: 2010Q4

REPORT INFORMATION
  Report Type: 
  Country: None (occurrence: None)
  Receive Date: 20101230
  Receipt Date: 20101228
  Transmission Date: 20110411
  Serious: Yes (Death)
  Sender: FDA-Public Use
  Company Number: JP-ROCHE-750808

PATIENT
  Sex: Female
  Weight: 59.4 kg

DRUGS (20)
  1. TOCILIZUMAB [Suspect]
     Indication: RHEUMATOID ARTHRITIS
     Route: 041
     Dates: start: 20080809, end: 20080809
  2. TOCILIZUMAB [Suspect]
     Route: 041
     Dates: start: 20080909, end: 20080909
  3. TOCILIZUMAB [Suspect]
     Route: 041
     Dates: start: 20081008, end: 20081008
  4. TOCILIZUMAB [Suspect]
     Route: 041
     Dates: start: 20081105, end: 20081105
  5. TOCILIZUMAB [Suspect]
     Route: 041
     Dates: start: 20081204, end: 20081204
  6. TOCILIZUMAB [Suspect]
     Route: 041
     Dates: start: 20081229, end: 20081229
  7. TOCILIZUMAB [Suspect]
     Route: 041
     Dates: start: 20090126, end: 20090126
  8. TOCILIZUMAB [Suspect]
     Route: 041
     Dates: start: 20090223, end: 20090223
  9. TOCILIZUMAB [Suspect]
     Route: 041
     Dates: start: 20090323, end: 20090323
  10. TOCILIZUMAB [Suspect]
     Route: 041
     Dates: start: 20090420, end: 20090420
  11. TOCILIZUMAB [Suspect]
     Route: 041
     Dates: start: 20090519, end: 20090519
  12. TOCILIZUMAB [Suspect]
     Route: 041
     Dates: start: 20090616, end: 20090616
  13. TOCILIZUMAB [Suspect]
     Route: 041
     Dates: start: 20090714, end: 20090714
  14. TACROLIMUS [Suspect]
     Indication: RHEUMATOID ARTHRITIS
     Route: 048
     Dates: start: 20080623
  15. TACROLIMUS [Suspect]
     Route: 048
     Dates: start: 20080925, end: 20081004
  16. PREDONINE [Concomitant]
     Route: 048
     Dates: start: 20081008
  17. PREDONINE [Concomitant]
     Route: 048
     Dates: start: 20081009
  18. CELCOX [Concomitant]
     Route: 048
  19. GASTER D [Concomitant]
     Route: 048
  20. LENDORMIN [Concomitant]
     Route: 048

REACTIONS (5)
  - DRUG ERUPTION [None]
  - LUNG SQUAMOUS CELL CARCINOMA STAGE UNSPECIFIED [None]
  - LYMPHANGIOSIS CARCINOMATOSA [None]
  - METASTASES TO CENTRAL NERVOUS SYSTEM [None]
  - RHEUMATOID ARTHRITIS [None]
